FAERS Safety Report 8597926-4 (Version None)
Quarter: 2012Q3

REPORT INFORMATION
  Report Type: 
  Country: None (occurrence: None)
  Receive Date: 20120816
  Receipt Date: 20120810
  Transmission Date: 20120928
  Serious: Yes (Other)
  Sender: FDA-Public Use
  Company Number: US-BAYER-200937393NA

PATIENT
  Age: 69 Year
  Sex: Female

DRUGS (33)
  1. TRASYLOL [Suspect]
     Indication: AORTIC VALVE REPLACEMENT
     Dosage: 2000000 U, LOADING DOSE
     Route: 042
     Dates: start: 20050223, end: 20050223
  2. FRESH FROZEN PLASMA [Concomitant]
     Dosage: 2 U, ONCE
     Route: 042
  3. TOPROL-XL [Concomitant]
     Indication: PRODUCT USED FOR UNKNOWN INDICATION
     Dosage: 50 MG, QD
     Route: 048
  4. LIPITOR [Concomitant]
     Indication: PRODUCT USED FOR UNKNOWN INDICATION
     Dosage: 40 MG, QD
     Route: 048
  5. IMDUR [Concomitant]
     Indication: PRODUCT USED FOR UNKNOWN INDICATION
     Dosage: 60 MG, QD
     Route: 048
  6. PAXIL [Concomitant]
     Indication: PRODUCT USED FOR UNKNOWN INDICATION
     Dosage: 20 MG, QD
     Route: 048
  7. DIOVAN [Concomitant]
     Indication: PRODUCT USED FOR UNKNOWN INDICATION
     Dosage: 80 MG, QD
     Route: 048
  8. CONTRAST MEDIA [Concomitant]
     Indication: ANGIOPLASTY
     Dosage: 200 ML
     Dates: start: 20050120
  9. TESSALON [Concomitant]
     Indication: PRODUCT USED FOR UNKNOWN INDICATION
     Dosage: ONE, TID
     Route: 048
  10. LASIX [Concomitant]
     Dosage: 20 MG
     Route: 048
  11. DIGOXIN [Concomitant]
  12. SUCCINYLCHOLINE CHLORIDE [Concomitant]
     Dosage: UNK
     Dates: start: 20050223
  13. TRASYLOL [Suspect]
     Indication: CORONARY ARTERY BYPASS
     Dosage: 10000 U, ONCE
     Route: 042
     Dates: start: 20050223, end: 20050223
  14. ALLEGRA [Concomitant]
     Indication: PRODUCT USED FOR UNKNOWN INDICATION
     Dosage: 60 MG, BID
     Route: 048
  15. PROTAMINE SULFATE [Concomitant]
     Dosage: 200 MG, SLOWLY
     Route: 042
     Dates: start: 20050223
  16. ALBUMIN [Concomitant]
     Dosage: 50
     Dates: start: 20050223
  17. TRASYLOL [Suspect]
     Dosage: 500000 U, INFUSION
     Route: 042
     Dates: start: 20050223, end: 20050223
  18. NITROGLYCERIN [Concomitant]
     Indication: PRODUCT USED FOR UNKNOWN INDICATION
     Route: 062
  19. FLUTICASONE PROPIONATE [Concomitant]
     Indication: PRODUCT USED FOR UNKNOWN INDICATION
     Dosage: INHAILED
  20. PREVACID [Concomitant]
     Indication: PRODUCT USED FOR UNKNOWN INDICATION
     Dosage: 30 MG, BID
     Route: 048
  21. ASPIRIN [Concomitant]
     Route: 048
  22. PLATELETS [Concomitant]
     Dosage: 2 U, ONCE
     Route: 042
  23. FLONASE [Concomitant]
     Indication: PRODUCT USED FOR UNKNOWN INDICATION
     Dosage: INHALANT
     Route: 045
  24. HYDROCHLOROTHIAZIDE [Concomitant]
     Indication: PRODUCT USED FOR UNKNOWN INDICATION
     Dosage: 25 MG, UNK
     Route: 048
  25. CELEBREX [Concomitant]
     Indication: PRODUCT USED FOR UNKNOWN INDICATION
     Dosage: 200 MG, QD
     Route: 048
  26. AMBIEN [Concomitant]
     Indication: PRODUCT USED FOR UNKNOWN INDICATION
     Dosage: 10 MG, QD
     Route: 048
  27. HEPARIN [Concomitant]
     Dosage: 9000 U
     Route: 042
     Dates: start: 20050223
  28. FENTANYL [Concomitant]
     Dosage: UNK
     Dates: start: 20050223
  29. LIMBITROL [Concomitant]
     Indication: PRODUCT USED FOR UNKNOWN INDICATION
     Dosage: 12.5/5 MG, TID
     Route: 048
  30. LASIX [Concomitant]
     Dosage: 40 MG
     Route: 042
     Dates: start: 20050223
  31. HEPARIN [Concomitant]
     Dosage: TITRATED
     Route: 042
     Dates: start: 20050223
  32. METOPROLOL TARTRATE [Concomitant]
     Dosage: 2 MG
     Route: 042
     Dates: start: 20050223
  33. MANNITOL [Concomitant]
     Dosage: 25 G
     Dates: start: 20050223

REACTIONS (4)
  - UNEVALUABLE EVENT [None]
  - PAIN [None]
  - INJURY [None]
  - RENAL FAILURE [None]
